FAERS Safety Report 5338756-6 (Version None)
Quarter: 2007Q2

REPORT INFORMATION
  Report Type: 
  Country: None (occurrence: None)
  Receive Date: 20070530
  Receipt Date: 20070518
  Transmission Date: 20071010
  Serious: Yes (Hospitalization)
  Sender: FDA-Public Use
  Company Number: NO-AMGEN-US226621

PATIENT
  Sex: Male

DRUGS (1)
  1. ENBREL [Suspect]
     Indication: ANKYLOSING SPONDYLITIS
     Dosage: DRUG STRENGTH-25MG. DRUG DOSE AND FREQUENCY NOT CLEAR
     Dates: start: 20060401, end: 20070401

REACTIONS (1)
  - UVEITIS [None]
